FAERS Safety Report 13734782 (Version 2)
Quarter: 2017Q3

REPORT INFORMATION
  Report Type: Spontaneous
  Country: US (occurrence: US)
  Receive Date: 20170710
  Receipt Date: 20170726
  Transmission Date: 20171127
  Serious: No
  Sender: FDA-Public Use
  Company Number: US-ASTRAZENECA-2017SE70078

PATIENT
  Sex: Female
  Weight: 86.2 kg

DRUGS (1)
  1. MOVANTIK [Suspect]
     Active Substance: NALOXEGOL OXALATE
     Indication: CONSTIPATION
     Route: 048
     Dates: end: 20170704

REACTIONS (5)
  - Lip swelling [Unknown]
  - Swelling [Unknown]
  - Drug interaction [Recovered/Resolved]
  - Hyperhidrosis [Unknown]
  - Limb discomfort [Unknown]
